FAERS Safety Report 4423897-8 (Version None)
Quarter: 2004Q3

REPORT INFORMATION
  Report Type: 
  Country: None (occurrence: None)
  Receive Date: 20040715
  Receipt Date: 20040422
  Transmission Date: 20050211
  Serious: Yes (Other)
  Sender: FDA-Public Use
  Company Number: 2003143510US

PATIENT
  Age: 37 Year
  Sex: Female

DRUGS (13)
  1. CELEBREX [Suspect]
     Indication: PAIN
     Dosage: 100 MG, BID, PRN, ORAL
     Route: 048
     Dates: start: 19990511, end: 19990601
  2. VIOXX [Suspect]
     Indication: PAIN
     Dosage: SEE IMAGE
     Route: 048
     Dates: start: 19990802, end: 19990801
  3. VIOXX [Suspect]
     Indication: PAIN
     Dosage: SEE IMAGE
     Route: 048
     Dates: start: 19990824, end: 20000101
  4. VIOXX [Suspect]
     Indication: PAIN
     Dosage: SEE IMAGE
     Route: 048
     Dates: start: 20000914, end: 20010101
  5. ULTRAM [Suspect]
     Indication: PAIN
     Dosage: 50 MG, Q 6 HRS, PRN, ORAL
     Route: 048
     Dates: start: 19990609, end: 19990101
  6. ULTRAM [Suspect]
     Indication: PAIN
     Dosage: 50 MG, Q 6 HRS, PRN, ORAL
     Route: 048
     Dates: start: 20000714
  7. KETOROLAC (KETOROLAC) [Suspect]
     Indication: PAIN
     Dosage: 10 MG, Q 6HRS, PRN, ORAL
     Route: 048
     Dates: start: 20010213, end: 20010101
  8. VICOPROFEN [Suspect]
     Indication: PAIN
     Dosage: 1 TAB, Q 8 HRS, ORAL
     Route: 048
     Dates: start: 20010327, end: 20010101
  9. HYDROCODONE W/ACETAMONOPHEN (PARACETAMOL, HYDROCODONE BITARTRATE) [Suspect]
     Indication: PAIN
     Dosage: 5/500, Q 6 HRS, PRN, ORAL
     Route: 048
     Dates: start: 20010420, end: 20010101
  10. HYDROCODONE W/ACETAMONOPHEN (PARACETAMOL, HYDROCODONE BITARTRATE) [Suspect]
     Indication: PAIN
     Dosage: 5/500, Q 6 HRS, PRN, ORAL
     Route: 048
     Dates: start: 20010416, end: 20010401
  11. ACETAMINOPHEN W/ CODEINE [Suspect]
     Indication: PAIN
     Dosage: 1 TO 2 ATBS Q 6 HRS, PRN, ORAL
     Route: 048
     Dates: start: 20010521, end: 20010101
  12. MOTRIN [Suspect]
     Indication: HEADACHE
     Dates: end: 20010101
  13. EXCEDRIN (MIGRAINE) [Suspect]
     Indication: HEADACHE
     Dates: end: 20010101

REACTIONS (2)
  - NEPHROTIC SYNDROME [None]
  - OEDEMA [None]
